FAERS Safety Report 7053511-7 (Version None)
Quarter: 2010Q4

REPORT INFORMATION
  Report Type: 
  Country: None (occurrence: None)
  Receive Date: 20101015
  Receipt Date: 20101008
  Transmission Date: 20110411
  Serious: Yes (Disabling, Other)
  Sender: FDA-Public Use
  Company Number: 2010SP053760

PATIENT
  Age: 27 Year
  Sex: Female
  Weight: 50 kg

DRUGS (2)
  1. CERAZETTE (DESOGESTREL /00754001/) [Suspect]
     Indication: PRODUCT USED FOR UNKNOWN INDICATION
     Dosage: 1 DF;QD;PO
     Route: 048
     Dates: start: 20100916, end: 20100920
  2. YASMIN [Suspect]
     Indication: CONTRACEPTION
     Dosage: PO
     Route: 048
     Dates: end: 20100915

REACTIONS (3)
  - ABDOMINAL PAIN LOWER [None]
  - BACK PAIN [None]
  - NO THERAPEUTIC RESPONSE [None]
